FAERS Safety Report 9708798 (Version 1)
Quarter: 2013Q4

REPORT INFORMATION
  Report Type: Spontaneous
  Country: US (occurrence: US)
  Receive Date: 20131125
  Receipt Date: 20131125
  Transmission Date: 20140711
  Serious: No
  Sender: FDA-Public Use
  Company Number: US-PFIZER INC-2013335996

PATIENT
  Age: 74 Year
  Sex: Female
  Weight: 99.77 kg

DRUGS (2)
  1. ATORVASTATIN CALCIUM [Suspect]
     Indication: BLOOD CHOLESTEROL INCREASED
     Dosage: 10 MG, ONCE A DAY
     Route: 048
     Dates: start: 2013
  2. AVAPRO [Concomitant]
     Dosage: UNK

REACTIONS (2)
  - Hypersensitivity [Unknown]
  - Rash [Unknown]
